FAERS Safety Report 6974928-2 (Version None)
Quarter: 2010Q3

REPORT INFORMATION
  Report Type: 
  Country: None (occurrence: None)
  Receive Date: 20100909
  Receipt Date: 20090106
  Transmission Date: 20110219
  Serious: No
  Sender: FDA-Public Use
  Company Number: US-WYE-H07608609

PATIENT
  Sex: Female
  Weight: 74.91 kg

DRUGS (15)
  1. PRISTIQ [Suspect]
     Indication: DEPRESSION
     Route: 048
     Dates: start: 20090105
  2. PROVERA [Concomitant]
  3. SYNTHROID [Concomitant]
  4. CALAN [Concomitant]
  5. TENORMIN [Concomitant]
  6. MULTI-VITAMINS [Concomitant]
  7. HYDROCHLOROTHIAZIDE [Concomitant]
  8. MAGNESIUM [Concomitant]
  9. FOLIC ACID [Concomitant]
  10. GLUCOSAMINE [Concomitant]
  11. ERGOCALCIFEROL [Concomitant]
  12. TRAZODONE HCL [Concomitant]
  13. XANAX [Concomitant]
  14. WELLBUTRIN [Concomitant]
  15. ESTRATEST [Concomitant]

REACTIONS (10)
  - DIZZINESS [None]
  - DRY MOUTH [None]
  - FATIGUE [None]
  - HYPERHIDROSIS [None]
  - INSOMNIA [None]
  - PAIN IN EXTREMITY [None]
  - RESTLESSNESS [None]
  - SENSATION OF HEAVINESS [None]
  - THINKING ABNORMAL [None]
  - UNEVALUABLE EVENT [None]
